FAERS Safety Report 26093813 (Version 1)
Quarter: 2025Q4

REPORT INFORMATION
  Report Type: Spontaneous
  Country: JP (occurrence: JP)
  Receive Date: 20251126
  Receipt Date: 20251126
  Transmission Date: 20260117
  Serious: Yes (Other)
  Sender: BAYER HEALTHCARE PHARMACEUTICALS INC.
  Company Number: JP-BAYER-2025A153690

PATIENT
  Age: 74 Year
  Sex: Male

DRUGS (2)
  1. NUBEQA [Suspect]
     Active Substance: DAROLUTAMIDE
     Dosage: 1200 MG
  2. DOCETAXEL [Suspect]
     Active Substance: DOCETAXEL
     Dosage: 6 DOSES

REACTIONS (3)
  - Neuropathy peripheral [Recovered/Resolved]
  - Constipation [Recovered/Resolved]
  - Malaise [Recovered/Resolved]
